FAERS Safety Report 7681730-5 (Version None)
Quarter: 2011Q3

REPORT INFORMATION
  Report Type: 
  Country: None (occurrence: None)
  Receive Date: 20110812
  Receipt Date: 20110729
  Transmission Date: 20111222
  Serious: Yes (Other)
  Sender: FDA-Public Use
  Company Number: GB-WATSON-2011-12097

PATIENT
  Age: 30 Year
  Sex: Female
  Weight: 60 kg

DRUGS (6)
  1. CREON [Concomitant]
     Indication: PANCREATECTOMY
     Dosage: 25000 IU, UNK
     Route: 048
     Dates: start: 20110301
  2. OMEPRAZOLE [Suspect]
     Indication: ABDOMINAL PAIN UPPER
     Dosage: 20 MG, UNKNOWN
     Route: 048
     Dates: start: 20110301, end: 20110401
  3. VITAMIN TAB [Concomitant]
     Indication: MALABSORPTION
     Route: 065
  4. ZINC SULPHATE [Concomitant]
     Indication: ZINC DEFICIENCY
     Dosage: 220 MG, DAILY
     Route: 048
     Dates: start: 20091101
  5. VENTOLIN [Concomitant]
     Indication: ASTHMA
     Dosage: 2 DF, PRN
     Route: 055
  6. VITAMIN TAB [Concomitant]
     Indication: HYPOVITAMINOSIS

REACTIONS (1)
  - NEUTROPHIL COUNT DECREASED [None]
